FAERS Safety Report 21066243 (Version 1)
Quarter: 2022Q3

REPORT INFORMATION
  Report Type: Spontaneous
  Country: US (occurrence: US)
  Receive Date: 20220711
  Receipt Date: 20220711
  Transmission Date: 20221027
  Serious: No
  Sender: FDA-Public Use
  Company Number: US-INTRA-CELLULAR THERAPIES, INC.-2022ICT00484

PATIENT
  Sex: Female

DRUGS (4)
  1. CAPLYTA [Suspect]
     Active Substance: LUMATEPERONE
     Dosage: UNK IN THE MORNING
     Dates: start: 20220422, end: 2022
  2. CAPLYTA [Suspect]
     Active Substance: LUMATEPERONE
     Dosage: UNK AT NIGHT
     Dates: start: 2022
  3. DEPAKOTE [Concomitant]
     Active Substance: DIVALPROEX SODIUM
  4. UNSPECIFIED INGREDIENT [Concomitant]
     Active Substance: UNSPECIFIED INGREDIENT

REACTIONS (3)
  - Insomnia [Unknown]
  - Mood altered [Unknown]
  - Sedation [Unknown]

NARRATIVE: CASE EVENT DATE: 20220101
